FAERS Safety Report 21424683 (Version 1)
Quarter: 2022Q4

REPORT INFORMATION
  Report Type: Spontaneous
  Country: PL (occurrence: PL)
  Receive Date: 20221007
  Receipt Date: 20221007
  Transmission Date: 20230113
  Serious: Yes (Other)
  Sender: FDA-Public Use
  Company Number: PL-MYLANLABS-2022M1014460

PATIENT
  Age: 68 Year
  Sex: Male
  Weight: 51 kg

DRUGS (4)
  1. PANCRELIPASE [Suspect]
     Active Substance: PANCRELIPASE
     Indication: Pancreatitis chronic
     Dosage: UNK
     Route: 048
     Dates: start: 20220419, end: 20220423
  2. PANCRELIPASE [Suspect]
     Active Substance: PANCRELIPASE
     Indication: Pancreatitis chronic
     Dosage: 25000
     Route: 048
     Dates: start: 20220212, end: 20220219
  3. GENTAMICIN [Concomitant]
     Active Substance: GENTAMICIN
     Indication: Product used for unknown indication
     Dosage: UNK
  4. TRIDERM [Concomitant]
     Active Substance: TRIAMCINOLONE ACETONIDE
     Indication: Product used for unknown indication
     Dosage: UNK

REACTIONS (18)
  - Erectile dysfunction [Recovered/Resolved]
  - Peripheral swelling [Recovered/Resolved]
  - Erythema [Recovered/Resolved]
  - Pruritus [Recovered/Resolved]
  - Hyperglycaemia [Unknown]
  - Product size issue [Unknown]
  - Nausea [Not Recovered/Not Resolved]
  - Product storage error [Unknown]
  - Drug ineffective [Not Recovered/Not Resolved]
  - Poor quality sleep [Recovered/Resolved]
  - Nocturia [Recovered/Resolved]
  - Chromaturia [Recovered/Resolved]
  - Abdominal pain upper [Recovered/Resolved]
  - Fungal infection [Recovered/Resolved]
  - Feeling abnormal [Not Recovered/Not Resolved]
  - Frequent bowel movements [Recovered/Resolved]
  - Anxiety [Unknown]
  - Pancreatitis [Recovered/Resolved]

NARRATIVE: CASE EVENT DATE: 20220101
